FAERS Safety Report 7067350-4 (Version None)
Quarter: 2010Q4

REPORT INFORMATION
  Report Type: 
  Country: None (occurrence: None)
  Receive Date: 20101028
  Receipt Date: 20090721
  Transmission Date: 20110411
  Serious: Yes (Death, Other)
  Sender: FDA-Public Use
  Company Number: US-ASTRAZENECA-2007UW03167

PATIENT
  Age: 18685 Day
  Sex: Female

DRUGS (10)
  1. SEROQUEL [Suspect]
     Dosage: 25 MG TO 100 MG
     Route: 048
     Dates: start: 20040326
  2. CYMBALTA [Concomitant]
     Dates: start: 20050111
  3. HYDROCHLOROTHIAZIDE [Concomitant]
     Dates: start: 20040416
  4. LIPITOR [Concomitant]
     Dates: start: 20050117
  5. PRILOSEC OTC [Concomitant]
     Dates: start: 20050111
  6. TOPAMAX [Concomitant]
     Dates: start: 20050514
  7. TRAMADOL HCL [Concomitant]
     Dates: start: 20030614
  8. AMBIEN [Concomitant]
     Dates: start: 20031224
  9. PAROXETINE HCL [Concomitant]
     Dates: start: 20040107
  10. TRAZODONE [Concomitant]
     Dates: start: 20040107

REACTIONS (6)
  - DEATH [None]
  - DIABETES MELLITUS [None]
  - DIABETIC COMA [None]
  - DIABETIC KETOACIDOSIS [None]
  - HYPERGLYCAEMIA [None]
  - PANCREATITIS [None]
